FAERS Safety Report 10883346 (Version 2)
Quarter: 2015Q2

REPORT INFORMATION
  Report Type: Report from Study
  Country: CA (occurrence: CA)
  Receive Date: 20150303
  Receipt Date: 20150514
  Transmission Date: 20150821
  Serious: Yes (Hospitalization)
  Sender: FDA-Public Use
  Company Number: CA-JNJFOC-20150219649

PATIENT
  Age: 79 Year
  Sex: Female

DRUGS (1)
  1. IMBRUVICA [Suspect]
     Active Substance: IBRUTINIB
     Indication: CHRONIC LYMPHOCYTIC LEUKAEMIA
     Route: 048
     Dates: start: 20150210, end: 20150211

REACTIONS (7)
  - Loss of consciousness [Recovered/Resolved]
  - Concussion [Recovered/Resolved]
  - Amnesia [Not Recovered/Not Resolved]
  - Upper limb fracture [Recovered/Resolved]
  - Facial bones fracture [Recovered/Resolved]
  - Fatigue [Not Recovered/Not Resolved]
  - Atrial fibrillation [Recovered/Resolved]

NARRATIVE: CASE EVENT DATE: 20150211
